FAERS Safety Report 7577708-2 (Version None)
Quarter: 2011Q2

REPORT INFORMATION
  Report Type: 
  Country: None (occurrence: None)
  Receive Date: 20110628
  Receipt Date: 20110620
  Transmission Date: 20111010
  Serious: Yes (Hospitalization)
  Sender: FDA-Public Use
  Company Number: US-EISAI INC-E7389-01135-CLI-US

PATIENT
  Sex: Male
  Weight: 67 kg

DRUGS (18)
  1. SPRIVIA [Concomitant]
     Dates: start: 20100308
  2. CARVEDILOL [Concomitant]
     Indication: CARDIOMYOPATHY
     Route: 048
     Dates: start: 20101021
  3. ERLOTINIB HYDROCHLORIDE [Concomitant]
     Indication: NON-SMALL CELL LUNG CANCER
     Route: 048
     Dates: start: 20101214, end: 20110117
  4. PROCHLORPERAZINE TAB [Concomitant]
     Indication: NAUSEA
     Route: 048
     Dates: start: 20101214
  5. FINASTERIDE [Concomitant]
     Route: 048
     Dates: start: 20101214
  6. LISINOPRIL [Concomitant]
     Indication: CARDIOMYOPATHY
     Route: 048
     Dates: start: 20100422
  7. M.V.I. [Concomitant]
     Indication: VITAMIN SUPPLEMENTATION
     Route: 048
     Dates: start: 20100629
  8. VICODIN [Concomitant]
     Indication: PAIN
     Route: 048
     Dates: start: 20091029
  9. ALDACTONE [Concomitant]
     Indication: CARDIOMYOPATHY
     Route: 048
     Dates: start: 20100422
  10. EPIRUBICIN HYDROCHLORIDE [Suspect]
     Indication: NON-SMALL CELL LUNG CANCER
     Route: 041
     Dates: start: 20101130, end: 20110104
  11. ASPIRIN [Concomitant]
     Indication: CARDIOMYOPATHY
     Route: 048
     Dates: start: 20101021
  12. MICONAZOLE [Concomitant]
     Indication: RASH
     Dates: start: 20101021
  13. MEGESTEROL [Concomitant]
     Route: 048
     Dates: start: 20101228
  14. ALBUTEROL SULFATE AUTOHALER [Concomitant]
     Route: 045
     Dates: start: 20101021
  15. LASIX [Concomitant]
     Indication: CARDIOMYOPATHY
     Route: 048
     Dates: start: 20100315
  16. CALCIUM CARBONATE [Concomitant]
     Route: 048
     Dates: start: 20100629
  17. VITAMIN D [Concomitant]
     Indication: VITAMIN D
     Route: 048
     Dates: start: 20100518
  18. TEMAZEPAM [Concomitant]
     Indication: SLEEP DISORDER
     Route: 048
     Dates: start: 20091116

REACTIONS (1)
  - SEPSIS [None]
